FAERS Safety Report 8532747-X (Version None)
Quarter: 2012Q3

REPORT INFORMATION
  Report Type: 
  Country: None (occurrence: None)
  Receive Date: 20120724
  Receipt Date: 20120719
  Transmission Date: 20120928
  Serious: Yes (Other)
  Sender: FDA-Public Use
  Company Number: PHHY2012BR062766

PATIENT
  Sex: Female
  Weight: 60 kg

DRUGS (8)
  1. EXELON [Suspect]
     Indication: PARKINSON'S DISEASE
     Dosage: 9.5 MG, DAILY
     Route: 062
  2. EXELON [Suspect]
     Dosage: 4.6 MG, DAILY
     Route: 062
  3. VERTIX [Concomitant]
     Dosage: 32 DF, UNK
  4. CAFFEINE CITRATE [Concomitant]
     Indication: MIGRAINE
     Dosage: 1 TO 4 TABLETS A DAY
     Route: 048
  5. TONOPAN [Concomitant]
     Indication: MIGRAINE
     Dosage: 1 TO 4 TABLETS
     Route: 048
  6. VERTIX [Concomitant]
     Indication: LABYRINTHITIS
     Dosage: 1 DF, DAILY
  7. NEOSALDINA [Concomitant]
     Indication: MIGRAINE
     Dosage: 1 TO 4 TABLETS A DAY
     Route: 048
  8. LISADOR [Concomitant]
     Indication: MIGRAINE
     Dosage: 1 TO 4 TABLETS A DAY
     Route: 048

REACTIONS (9)
  - CRYING [None]
  - ASTHENIA [None]
  - PARKINSON'S DISEASE [None]
  - DEPRESSION [None]
  - LABYRINTHITIS [None]
  - DIZZINESS [None]
  - TREMOR [None]
  - APATHY [None]
  - NAUSEA [None]
